FAERS Safety Report 24268951 (Version 5)
Quarter: 2025Q2

REPORT INFORMATION
  Report Type: Spontaneous
  Country: US (occurrence: US)
  Receive Date: 20240830
  Receipt Date: 20250408
  Transmission Date: 20250716
  Serious: No
  Sender: NOVARTIS
  Company Number: US-002147023-NVSC2024US175310

PATIENT
  Age: 53 Year
  Sex: Male

DRUGS (1)
  1. COSENTYX [Suspect]
     Active Substance: SECUKINUMAB
     Indication: Product used for unknown indication
     Dosage: 300 MG, QMO (INJECTION)
     Route: 050
     Dates: start: 20231001

REACTIONS (5)
  - Accidental exposure to product [Unknown]
  - Drug dose omission by device [Unknown]
  - Injection site injury [Unknown]
  - Needle issue [Unknown]
  - Device issue [Unknown]

NARRATIVE: CASE EVENT DATE: 20240829
